FAERS Safety Report 9031428 (Version 1)
Quarter: 2013Q1

REPORT INFORMATION
  Report Type: Spontaneous
  Country: CL (occurrence: CL)
  Receive Date: 20130124
  Receipt Date: 20130124
  Transmission Date: 20140127
  Serious: Yes (Other)
  Sender: FDA-Public Use
  Company Number: PHHY2013CL005259

PATIENT
  Age: 67 None
  Sex: Female
  Weight: 50 kg

DRUGS (5)
  1. ACLASTA [Suspect]
     Indication: BONE DISORDER
     Dosage: 5 MG, YEARLY
     Route: 042
     Dates: start: 20120106
  2. LEVOTHYROXINE [Concomitant]
     Indication: HYPOTHYROIDISM
     Dosage: 50 MG, QD
     Route: 048
     Dates: start: 2011
  3. SALBUTAMOL [Concomitant]
     Indication: ASTHMA
     Dosage: 2 PUFF, SOS
  4. BUDESONIDE [Concomitant]
     Indication: ASTHMA
     Dosage: 2 PUFF, UNK
  5. CALCIUM [Concomitant]
     Indication: BONE DISORDER
     Dosage: UNK UKN, BID
     Route: 048
     Dates: start: 2011

REACTIONS (8)
  - Liver injury [Not Recovered/Not Resolved]
  - Renal cyst [Not Recovered/Not Resolved]
  - Tendonitis [Not Recovered/Not Resolved]
  - Pain [Not Recovered/Not Resolved]
  - Joint stiffness [Not Recovered/Not Resolved]
  - Swelling [Not Recovered/Not Resolved]
  - Weight decreased [Recovered/Resolved with Sequelae]
  - Hypertension [Unknown]
